FAERS Safety Report 24591776 (Version 1)
Quarter: 2024Q4

REPORT INFORMATION
  Report Type: Other
  Country: FR (occurrence: FR)
  Receive Date: 20241108
  Receipt Date: 20241108
  Transmission Date: 20250115
  Serious: Yes (Other)
  Sender: ZYDUS PHARM
  Company Number: None

PATIENT

DRUGS (4)
  1. OLANZAPINE [Suspect]
     Active Substance: OLANZAPINE
     Indication: Anorexia nervosa
     Dosage: 10 MILLIGRAM, QD
     Route: 048
     Dates: start: 2022, end: 2023
  2. OLANZAPINE [Suspect]
     Active Substance: OLANZAPINE
     Indication: Depression
     Dosage: 10 MILLIGRAM, QD
     Route: 048
     Dates: start: 2024, end: 202410
  3. FLUOXETINE [Suspect]
     Active Substance: FLUOXETINE HYDROCHLORIDE
     Indication: Anorexia nervosa
     Dosage: 60 MILLIGRAM, QD
     Route: 048
     Dates: start: 2022, end: 2023
  4. FLUOXETINE [Suspect]
     Active Substance: FLUOXETINE HYDROCHLORIDE
     Dosage: 60 MILLIGRAM, QD
     Route: 048
     Dates: start: 2024

REACTIONS (1)
  - Oculogyric crisis [Unknown]

NARRATIVE: CASE EVENT DATE: 20240101
